FAERS Safety Report 6403317-4 (Version None)
Quarter: 2009Q4

REPORT INFORMATION
  Report Type: 
  Country: None (occurrence: None)
  Receive Date: 20091016
  Receipt Date: 20091007
  Transmission Date: 20100525
  Serious: Yes (Hospitalization)
  Sender: FDA-Public Use
  Company Number: NZ-ASTRAZENECA-2009SE18799

PATIENT
  Sex: Male

DRUGS (2)
  1. FELODIPINE [Suspect]
     Indication: ESSENTIAL HYPERTENSION
     Route: 048
     Dates: end: 20020101
  2. AMILORIDE HCL AND HYDROCHLOROTHIAZIDE [Suspect]
     Indication: ESSENTIAL HYPERTENSION
     Route: 048
     Dates: end: 20020101

REACTIONS (5)
  - DIABETES MELLITUS [None]
  - NEUROPATHY PERIPHERAL [None]
  - SOMNOLENCE [None]
  - THIRST [None]
  - WEIGHT DECREASED [None]
